FAERS Safety Report 5256468-4 (Version None)
Quarter: 2007Q1

REPORT INFORMATION
  Report Type: 
  Country: None (occurrence: None)
  Receive Date: 20070306
  Receipt Date: 20070301
  Transmission Date: 20070707
  Serious: Yes (Other)
  Sender: FDA-Public Use
  Company Number: US-GLAXOSMITHKLINE-A0641487A

PATIENT
  Age: 43 Year
  Sex: Male

DRUGS (3)
  1. BUPROPION HCL [Suspect]
     Indication: DEPRESSION
     Dosage: 300MG PER DAY
     Route: 048
     Dates: end: 20070222
  2. METHADONE HCL [Concomitant]
  3. VALIUM [Concomitant]

REACTIONS (5)
  - FEAR [None]
  - HALLUCINATION [None]
  - ILL-DEFINED DISORDER [None]
  - NIGHTMARE [None]
  - PHARMACEUTICAL PRODUCT COMPLAINT [None]
